FAERS Safety Report 7719300-2 (Version None)
Quarter: 2011Q3

REPORT INFORMATION
  Report Type: 
  Country: None (occurrence: None)
  Receive Date: 20110830
  Receipt Date: 20110819
  Transmission Date: 20111222
  Serious: Yes (Hospitalization, Disabling)
  Sender: FDA-Public Use
  Company Number: US-JNJFOC-20110301095

PATIENT
  Sex: Male

DRUGS (7)
  1. REMICADE [Suspect]
     Route: 042
     Dates: start: 20090501, end: 20100501
  2. ENALAPRIL MALEATE [Concomitant]
     Indication: HYPERTENSION
  3. TYLENOL-500 [Concomitant]
     Indication: PREMEDICATION
  4. DOVONEX [Concomitant]
     Indication: PSORIASIS
     Route: 061
  5. BENADRYL [Concomitant]
     Indication: PREMEDICATION
  6. REMICADE [Suspect]
     Indication: PSORIASIS
     Route: 042
     Dates: start: 20110214
  7. TRIAMCINOLONE [Concomitant]
     Route: 065

REACTIONS (5)
  - SERUM SICKNESS [None]
  - BLOOD THYROID STIMULATING HORMONE INCREASED [None]
  - WHITE BLOOD CELL COUNT INCREASED [None]
  - INTERNATIONAL NORMALISED RATIO INCREASED [None]
  - HAEMOGLOBIN DECREASED [None]
